FAERS Safety Report 25385178 (Version 1)
Quarter: 2025Q2

REPORT INFORMATION
  Report Type: Spontaneous
  Country: US (occurrence: None)
  Receive Date: 20250531
  Receipt Date: 20250531
  Transmission Date: 20250716
  Serious: Yes (Hospitalization)
  Sender: FDA-CTU
  Company Number: None

PATIENT
  Age: 76 Year
  Sex: Female
  Weight: 41.4 kg

DRUGS (3)
  1. CARBOPLATIN [Suspect]
     Active Substance: CARBOPLATIN
  2. ERBITUX [Suspect]
     Active Substance: CETUXIMAB
     Dates: end: 20250513
  3. TAXOTERE [Suspect]
     Active Substance: DOCETAXEL
     Dates: end: 20250513

REACTIONS (4)
  - Hypophagia [None]
  - Malaise [None]
  - Fatigue [None]
  - Blood phosphorus decreased [None]

NARRATIVE: CASE EVENT DATE: 20250521
